FAERS Safety Report 9714819 (Version 2)
Quarter: 2013Q4

REPORT INFORMATION
  Report Type: Spontaneous
  Country: PT (occurrence: PT)
  Receive Date: 20131126
  Receipt Date: 20131203
  Transmission Date: 20140711
  Serious: Yes (Hospitalization, Other)
  Sender: FDA-Public Use
  Company Number: PT-B.I. PHARMACEUTICALS,INC./RIDGEFIELD-2013-BI-38614GD

PATIENT
  Age: 70 Year
  Sex: Female

DRUGS (3)
  1. PRADAXA [Suspect]
     Indication: ATRIAL FIBRILLATION
     Dosage: 220 MG
     Route: 048
  2. AMIODARONE [Suspect]
     Dosage: 200 MG
  3. PROTON PUMP INHIBITORS [Suspect]

REACTIONS (2)
  - Ischaemic stroke [Unknown]
  - Drug resistance [Unknown]
